FAERS Safety Report 6304009-2 (Version None)
Quarter: 2009Q3

REPORT INFORMATION
  Report Type: 
  Country: None (occurrence: None)
  Receive Date: 20090810
  Receipt Date: 20090731
  Transmission Date: 20100115
  Serious: Yes (Other)
  Sender: FDA-Public Use
  Company Number: US-PFIZER INC-2009249529

PATIENT
  Sex: Female
  Weight: 49.895 kg

DRUGS (1)
  1. CELEBREX [Suspect]
     Indication: PAIN MANAGEMENT
     Dosage: 200 MG, 1X/DAY
     Route: 048
     Dates: start: 19970101, end: 20090701

REACTIONS (3)
  - ECCHYMOSIS [None]
  - MENORRHAGIA [None]
  - SKIN FRAGILITY [None]
